FAERS Safety Report 8175352-X (Version None)
Quarter: 2012Q1

REPORT INFORMATION
  Report Type: 
  Country: None (occurrence: None)
  Receive Date: 20120229
  Receipt Date: 20120228
  Transmission Date: 20120608
  Serious: Yes (Other)
  Sender: FDA-Public Use
  Company Number: US-PFIZER INC-2012038959

PATIENT
  Sex: Female
  Weight: 73.016 kg

DRUGS (6)
  1. CELEBREX [Suspect]
     Dosage: 200 MG, 2X/DAY
     Dates: start: 20030101, end: 20120221
  2. LISINOPRIL AND HYDROCHLOROTHIAZIDE [Concomitant]
     Dosage: 12.5/20 MG, 1X/DAY
  3. LEVOTHYROXINE [Concomitant]
     Dosage: UNK
  4. CELEBREX [Suspect]
     Indication: ARTHRITIS
     Dosage: 200 MG, 1X/DAY
     Route: 048
     Dates: start: 20010101
  5. CELEBREX [Suspect]
     Dosage: 200 MG, 2X/DAY
     Route: 048
  6. CITALOPRAM [Concomitant]
     Dosage: 20 MG, UNK

REACTIONS (3)
  - DISCOMFORT [None]
  - PAIN [None]
  - ARACHNOIDITIS [None]
